FAERS Safety Report 4868689-0 (Version None)
Quarter: 2005Q4

REPORT INFORMATION
  Report Type: 
  Country: None (occurrence: None)
  Receive Date: 20051223
  Receipt Date: 20051214
  Transmission Date: 20060501
  Serious: Yes (Other)
  Sender: FDA-Public Use
  Company Number: 2005151358

PATIENT
  Age: 63 Year
  Sex: Female
  Weight: 90.7194 kg

DRUGS (3)
  1. AROMASIN [Suspect]
     Indication: BREAST CANCER
     Dosage: 25 MG (25 MG, DAILY), ORAL
     Route: 048
     Dates: end: 20051103
  2. HYDROCHLOROTHIAZIDE [Concomitant]
  3. SYNTHROID [Concomitant]

REACTIONS (16)
  - ACTIVITIES OF DAILY LIVING IMPAIRED [None]
  - ARTHRITIS [None]
  - CHEST DISCOMFORT [None]
  - CONDITION AGGRAVATED [None]
  - DEPRESSION [None]
  - DRUG INEFFECTIVE [None]
  - DRY EYE [None]
  - DYSSTASIA [None]
  - EMOTIONAL DISTRESS [None]
  - FATIGUE [None]
  - HEART RATE INCREASED [None]
  - HYPERTENSION [None]
  - INADEQUATE ANALGESIA [None]
  - INSOMNIA [None]
  - THINKING ABNORMAL [None]
  - WEIGHT INCREASED [None]
